FAERS Safety Report 18210023 (Version 2)
Quarter: 2025Q4

REPORT INFORMATION
  Report Type: Spontaneous
  Country: GB (occurrence: GB)
  Receive Date: 20200829
  Receipt Date: 20251129
  Transmission Date: 20260117
  Serious: Yes (Death, Hospitalization, Other)
  Sender: AUROBINDO
  Company Number: GB-APOTEX-2009AP004220

PATIENT
  Age: 44 Year
  Sex: Male

DRUGS (3)
  1. LOSARTAN POTASSIUM [Suspect]
     Active Substance: LOSARTAN POTASSIUM
     Indication: Hypertension
     Dosage: UNK
  2. ALFENTANIL [Concomitant]
     Active Substance: ALFENTANIL
     Indication: Product used for unknown indication
     Dosage: UNK
     Route: 065
  3. PROPOFOL [Concomitant]
     Active Substance: PROPOFOL
     Indication: Generalised tonic-clonic seizure
     Dosage: UNK (350 MG.H^-1)
     Route: 065

REACTIONS (9)
  - Pneumonia [Fatal]
  - Obstructive airways disorder [Unknown]
  - Cardiac arrest [Recovering/Resolving]
  - Post-anoxic myoclonus [Recovered/Resolved]
  - Myoclonus [Recovering/Resolving]
  - Pulseless electrical activity [Recovering/Resolving]
  - Respiratory distress [Recovering/Resolving]
  - Generalised tonic-clonic seizure [Recovered/Resolved]
  - Angioedema [Recovering/Resolving]
